FAERS Safety Report 8018817-3 (Version None)
Quarter: 2012Q1

REPORT INFORMATION
  Report Type: 
  Country: None (occurrence: None)
  Receive Date: 20120103
  Receipt Date: 20111227
  Transmission Date: 20120608
  Serious: Yes (Death, Other)
  Sender: FDA-Public Use
  Company Number: ES-PFIZER INC-2011313884

PATIENT
  Age: 85 Year
  Sex: Female

DRUGS (6)
  1. PIPERACILLIN AND TAZOBACTAM [Suspect]
     Indication: RESPIRATORY TRACT INFECTION
     Dosage: 1 DF, 3X/DAY
     Route: 042
     Dates: start: 20110731
  2. SINTROM [Interacting]
     Indication: ATRIAL FLUTTER
     Dosage: 4 MG, UNK
     Route: 048
     Dates: start: 20100901, end: 20110808
  3. PANTOPRAZOLE [Concomitant]
     Dosage: UNK
     Dates: start: 20110731
  4. ATORVASTATIN [Concomitant]
     Indication: DYSLIPIDAEMIA
     Dosage: 80 MG, 1X/DAY
     Route: 048
     Dates: start: 20110731
  5. AMIODARONE [Concomitant]
     Indication: ATRIAL FLUTTER
     Dosage: UNK
     Dates: start: 20100901
  6. ENOXAPARIN SODIUM [Interacting]
     Indication: CEREBROVASCULAR ACCIDENT
     Dosage: 40 MG, 1X/DAY
     Route: 058
     Dates: start: 20110731, end: 20110731

REACTIONS (5)
  - DRUG INTERACTION [None]
  - ANAEMIA [None]
  - PULMONARY OEDEMA [None]
  - HYPOCOAGULABLE STATE [None]
  - RHABDOMYOLYSIS [None]
